FAERS Safety Report 7300896-X (Version None)
Quarter: 2011Q1

REPORT INFORMATION
  Report Type: 
  Country: None (occurrence: None)
  Receive Date: 20110103
  Receipt Date: 20100107
  Transmission Date: 20110831
  Serious: Yes (Other)
  Sender: FDA-Public Use
  Company Number: US-003894

PATIENT
  Age: 22 Year
  Sex: Female
  Weight: 98 kg

DRUGS (2)
  1. MULTIHANCE [Suspect]
     Indication: CONVULSION
     Dosage: 19ML ONCE, INTRAVENOUS
     Route: 042
     Dates: start: 20100105, end: 20100105
  2. MULTIHANCE [Suspect]
     Indication: NUCLEAR MAGNETIC RESONANCE IMAGING BRAIN
     Dosage: 19ML ONCE, INTRAVENOUS
     Route: 042
     Dates: start: 20100105, end: 20100105

REACTIONS (4)
  - CONVULSION [None]
  - NAUSEA [None]
  - PRURITUS [None]
  - VOMITING [None]
